FAERS Safety Report 22908988 (Version 4)
Quarter: 2024Q1

REPORT INFORMATION
  Report Type: Spontaneous
  Country: JP (occurrence: JP)
  Receive Date: 20230905
  Receipt Date: 20240310
  Transmission Date: 20240410
  Serious: Yes (Hospitalization, Other)
  Sender: FDA-Public Use
  Company Number: JP-SA-2023SA268259

PATIENT
  Age: 84 Year
  Sex: Female
  Weight: 48.9 kg

DRUGS (11)
  1. DUPIXENT [Suspect]
     Active Substance: DUPILUMAB
     Indication: Neurodermatitis
     Dosage: 600 MG, 1X
     Route: 058
     Dates: start: 20230615, end: 20230615
  2. DUPIXENT [Suspect]
     Active Substance: DUPILUMAB
     Indication: Dermatitis atopic
     Dosage: 300 MG, QOW
     Route: 058
     Dates: start: 20230629, end: 20230713
  3. GLIMEPIRIDE [Concomitant]
     Active Substance: GLIMEPIRIDE
     Indication: Diabetes mellitus
     Route: 048
  4. JANUVIA [Concomitant]
     Active Substance: SITAGLIPTIN PHOSPHATE
     Indication: Diabetes mellitus
     Route: 048
  5. ELDECALCITOL [Concomitant]
     Active Substance: ELDECALCITOL
     Indication: Osteoporosis
     Route: 048
  6. RUPAFIN [Concomitant]
     Active Substance: RUPATADINE FUMARATE
     Indication: Pruritus
     Dosage: DAILY DOSE: 20 MG
     Route: 048
     Dates: start: 20230615, end: 20230713
  7. BILANOA OD [Concomitant]
     Indication: Pruritus
     Dosage: DAILY DOSE: 20 MG
     Route: 048
     Dates: start: 20230615, end: 20230713
  8. RINDERON VG [Concomitant]
     Active Substance: BETAMETHASONE VALERATE\GENTAMICIN SULFATE
     Indication: Dermatitis
     Dosage: 0.5 ML, BID
     Route: 061
     Dates: start: 20230615, end: 20230713
  9. BETAMETHASONE DIPROPIONATE [Concomitant]
     Active Substance: BETAMETHASONE DIPROPIONATE
     Indication: Dermatitis
     Dosage: 2.5 G, BID
     Route: 061
     Dates: start: 20230615, end: 20230713
  10. GLYCOSAMINOGLYCANS [Concomitant]
     Active Substance: GLYCOSAMINOGLYCANS
     Indication: Dermatitis
     Dosage: 2.5 G, BID
     Route: 061
     Dates: start: 20230615, end: 20230713
  11. CLOBETASOL [Concomitant]
     Active Substance: CLOBETASOL
     Indication: Dermatitis
     Dosage: 3 UNK, BID
     Route: 061
     Dates: start: 20230629, end: 20230713

REACTIONS (5)
  - Polyarthritis [Recovered/Resolved]
  - Generalised oedema [Recovered/Resolved]
  - Arthropathy [Recovered/Resolved]
  - Pain [Recovered/Resolved]
  - Arthralgia [Recovered/Resolved]

NARRATIVE: CASE EVENT DATE: 20230714
